FAERS Safety Report 13233375 (Version 1)
Quarter: 2017Q1

REPORT INFORMATION
  Report Type: Spontaneous
  Country: US (occurrence: US)
  Receive Date: 20170214
  Receipt Date: 20170214
  Transmission Date: 20170428
  Serious: Yes (Hospitalization)
  Sender: FDA-Public Use
  Company Number: None

PATIENT
  Age: 55 Year
  Sex: Male
  Weight: 72.5 kg

DRUGS (1)
  1. METAXALONE. [Suspect]
     Active Substance: METAXALONE
     Indication: PAIN
     Dates: start: 20161208, end: 20161215

REACTIONS (2)
  - Angioedema [None]
  - Heart rate increased [None]

NARRATIVE: CASE EVENT DATE: 20161215
